FAERS Safety Report 11653577 (Version 1)
Quarter: 2015Q4

REPORT INFORMATION
  Report Type: Spontaneous
  Country: US (occurrence: US)
  Receive Date: 20151022
  Receipt Date: 20151022
  Transmission Date: 20160304
  Serious: Yes (Other)
  Sender: FDA-Public Use
  Company Number: US-MEDA-2015100063

PATIENT
  Sex: Female

DRUGS (3)
  1. FELBATOL [Suspect]
     Active Substance: FELBAMATE
     Indication: SEIZURE
     Dosage: 800 MG AT 07:00 AM, 400 MG AT 02:00 PM, 800 MG AT 07:00 PM AND 11:00 PM
     Route: 048
     Dates: end: 2014
  2. FELBATOL [Suspect]
     Active Substance: FELBAMATE
     Indication: SEIZURE
     Route: 048
  3. FELBATOL [Suspect]
     Active Substance: FELBAMATE
     Indication: SEIZURE
     Dosage: 1000 MG AT 07:00 AM, 400 MG AT 02:00 PM, 800 MG AT 07:00 PM AND 11:00 PM
     Route: 048
     Dates: start: 2014

REACTIONS (3)
  - Epilepsy [Unknown]
  - Nystagmus [Unknown]
  - Drug withdrawal convulsions [Recovered/Resolved]

NARRATIVE: CASE EVENT DATE: 2011
